FAERS Safety Report 6899666-6 (Version None)
Quarter: 2010Q3

REPORT INFORMATION
  Report Type: 
  Country: None (occurrence: None)
  Receive Date: 20100803
  Receipt Date: 20100728
  Transmission Date: 20110219
  Serious: Yes (Other)
  Sender: FDA-Public Use
  Company Number: US-CEPHALON-2010003973

PATIENT
  Sex: Female
  Weight: 50 kg

DRUGS (3)
  1. FENTORA [Suspect]
     Route: 002
     Dates: start: 20060701, end: 20060701
  2. ARICEPT [Concomitant]
     Indication: DEMENTIA
     Route: 048
     Dates: start: 20040101
  3. LIDODERM [Concomitant]
     Indication: PAIN
     Route: 062

REACTIONS (5)
  - ACCIDENTAL EXPOSURE [None]
  - CATATONIA [None]
  - CIRCULATORY COLLAPSE [None]
  - HEART RATE IRREGULAR [None]
  - RESPIRATORY DEPRESSION [None]
